FAERS Safety Report 16484296 (Version 1)
Quarter: 2019Q3

REPORT INFORMATION
  Report Type: Spontaneous
  Country: US (occurrence: US)
  Receive Date: 20190625
  Receipt Date: 20190625
  Transmission Date: 20191004
  Serious: Yes (Other)
  Sender: FDA-Public Use
  Company Number: None

PATIENT
  Age: 21 Month
  Sex: Male
  Weight: 13.5 kg

DRUGS (1)
  1. THINKBABY BABY SUNSCREEN SPF 50 [Suspect]
     Active Substance: ZINC OXIDE

REACTIONS (3)
  - Dermatitis contact [None]
  - Rash papular [None]
  - Rash [None]

NARRATIVE: CASE EVENT DATE: 20190505
